FAERS Safety Report 10017307 (Version 1)
Quarter: 2014Q1

REPORT INFORMATION
  Report Type: Spontaneous
  Country: US (occurrence: None)
  Receive Date: 20140313
  Receipt Date: 20140313
  Transmission Date: 20141002
  Serious: Yes (Other)
  Sender: FDA-Public Use
  Company Number: None

PATIENT
  Age: 67 Year
  Sex: Female
  Weight: 83.92 kg

DRUGS (1)
  1. CLOPIDOGREL 75 MG TAB: MYLA [Suspect]
     Indication: SKIN DISCOLOURATION
     Dosage: 1 ONCE DAILY
     Route: 048
     Dates: start: 20131223, end: 20140303

REACTIONS (6)
  - Influenza like illness [None]
  - Oropharyngeal pain [None]
  - Fatigue [None]
  - Arthralgia [None]
  - Lethargy [None]
  - Pyrexia [None]
